FAERS Safety Report 6170471-1 (Version None)
Quarter: 2009Q2

REPORT INFORMATION
  Report Type: 
  Country: None (occurrence: None)
  Receive Date: 20090428
  Receipt Date: 20090418
  Transmission Date: 20091009
  Serious: Yes (Hospitalization, Other)
  Sender: FDA-Public Use
  Company Number: US-PFIZER INC-2008159357

PATIENT
  Sex: Female
  Weight: 117 kg

DRUGS (10)
  1. CHANTIX [Suspect]
     Indication: SMOKING CESSATION THERAPY
     Dosage: UNK
     Dates: start: 20080101, end: 20080101
  2. SEROQUEL [Concomitant]
     Dosage: UNK
  3. VALIUM [Concomitant]
     Dosage: UNK
  4. HYDROCODONE BITARTRATE [Concomitant]
     Dosage: UNK
  5. DEPAKOTE [Concomitant]
     Dosage: UNK
  6. TEGRETOL [Concomitant]
     Dosage: UNK
  7. ABILIFY [Concomitant]
     Dosage: UNK
  8. AMBIEN [Concomitant]
     Dosage: UNK
  9. ALL OTHER THERAPEUTIC PRODUCTS [Concomitant]
     Dosage: UNK
  10. CARDIZEM [Concomitant]
     Dosage: UNK

REACTIONS (17)
  - ABNORMAL BEHAVIOUR [None]
  - ANXIETY [None]
  - BIPOLAR DISORDER [None]
  - CEREBROVASCULAR ACCIDENT [None]
  - DELUSION [None]
  - DEPRESSION [None]
  - DRUG SCREEN POSITIVE [None]
  - HALLUCINATION [None]
  - HOMICIDAL IDEATION [None]
  - MALAISE [None]
  - NIGHTMARE [None]
  - PARANOIA [None]
  - STRESS [None]
  - THINKING ABNORMAL [None]
  - TREMOR [None]
  - VOMITING [None]
  - WEIGHT DECREASED [None]
